FAERS Safety Report 8889377 (Version 1)
Quarter: 2012Q4

REPORT INFORMATION
  Report Type: 
  Country: US (occurrence: None)
  Receive Date: 20121101
  Receipt Date: 20121101
  Transmission Date: 20130627
  Serious: Yes (Other)
  Sender: FDA-Public Use
  Company Number: None

PATIENT
  Age: 66 Year
  Sex: Male
  Weight: 86.18 kg

DRUGS (1)
  1. CLOPIDOGREL [Suspect]
     Indication: CAD
     Route: 048
     Dates: start: 20120723

REACTIONS (2)
  - Headache [None]
  - Drug effect decreased [None]
